FAERS Safety Report 9114776 (Version 1)
Quarter: 2013Q1

REPORT INFORMATION
  Report Type: Report from Study
  Country: AU (occurrence: AU)
  Receive Date: 20130208
  Receipt Date: 20130208
  Transmission Date: 20140127
  Serious: Yes (Other)
  Sender: FDA-Public Use
  Company Number: AU-JNJFOC-20130201792

PATIENT
  Age: 57 Year
  Sex: Female

DRUGS (4)
  1. SIMPONI [Suspect]
     Indication: RHEUMATOID ARTHRITIS
     Route: 058
     Dates: start: 20100701, end: 20121101
  2. METHOTREXATE [Concomitant]
  3. PREDNISOLONE [Concomitant]
  4. ARAVA [Concomitant]

REACTIONS (1)
  - Breast cancer [Not Recovered/Not Resolved]
